FAERS Safety Report 9079324 (Version 1)
Quarter: 2013Q1

REPORT INFORMATION
  Report Type: Report from Study
  Country: US (occurrence: US)
  Receive Date: 20130130
  Receipt Date: 20130130
  Transmission Date: 20140127
  Serious: No
  Sender: FDA-Public Use
  Company Number: US-ABBOTT-12P-163-0960220-00

PATIENT
  Sex: Female
  Weight: 125.3 kg

DRUGS (14)
  1. HUMIRA 40 MG/0.8 ML PEN [Suspect]
     Indication: RHEUMATOID ARTHRITIS
     Dates: start: 201205, end: 201207
  2. CYMBALTA [Concomitant]
     Indication: DEPRESSION
  3. DAYPRO [Concomitant]
     Indication: RHEUMATOID ARTHRITIS
  4. METHOTREXATE [Concomitant]
     Indication: RHEUMATOID ARTHRITIS
  5. MAGNESIUM [Concomitant]
     Indication: MINERAL SUPPLEMENTATION
  6. OXYBUTYNIN [Concomitant]
     Indication: HYPERTONIC BLADDER
  7. VITAMIN D3 [Concomitant]
     Indication: VITAMIN SUPPLEMENTATION
  8. CYCLOBENZAPRINE [Concomitant]
     Indication: PAIN
  9. TYLENOL PM [Concomitant]
     Indication: INSOMNIA
  10. FLONASE [Concomitant]
     Indication: HYPERSENSITIVITY
  11. COMBIVENT [Concomitant]
     Indication: HYPERSENSITIVITY
  12. FOLIC ACID [Concomitant]
     Indication: VITAMIN SUPPLEMENTATION
  13. ASPIRIN [Concomitant]
     Indication: CARDIOVASCULAR EVENT PROPHYLAXIS
  14. VERAPAMIL [Concomitant]
     Indication: HYPERTENSION

REACTIONS (1)
  - Drug ineffective [Not Recovered/Not Resolved]
